FAERS Safety Report 16656782 (Version 3)
Quarter: 2019Q3

REPORT INFORMATION
  Report Type: Spontaneous
  Country: CN (occurrence: CN)
  Receive Date: 20190801
  Receipt Date: 20190807
  Transmission Date: 20191004
  Serious: Yes (Other)
  Sender: FDA-Public Use
  Company Number: CN-009507513-1907CHN014117

PATIENT
  Age: 40 Year
  Sex: Female
  Weight: 54 kg

DRUGS (1)
  1. PUREGON (FOLLITROPIN BETA) [Suspect]
     Active Substance: FOLLITROPIN
     Indication: ASSISTED REPRODUCTIVE TECHNOLOGY
     Dosage: 250 INTERNATIONAL UNIT
     Route: 058
     Dates: start: 20190718, end: 20190718

REACTIONS (6)
  - Palpitations [Recovering/Resolving]
  - Blood pressure abnormal [Recovering/Resolving]
  - Hypersensitivity [Recovering/Resolving]
  - Heart rate abnormal [Recovering/Resolving]
  - Hypoaesthesia oral [Recovering/Resolving]
  - Dyspnoea [Recovering/Resolving]

NARRATIVE: CASE EVENT DATE: 20190718
